FAERS Safety Report 4527686-5 (Version None)
Quarter: 2004Q4

REPORT INFORMATION
  Report Type: 
  Country: None (occurrence: None)
  Receive Date: 20041215
  Receipt Date: 20041210
  Transmission Date: 20050328
  Serious: Yes (Death)
  Sender: FDA-Public Use
  Company Number: DE-MERCK-0412DEU00104

PATIENT
  Age: 60 Year
  Sex: Male
  Weight: 123 kg

DRUGS (6)
  1. VIOXX [Suspect]
     Indication: RHEUMATOID ARTHRITIS
     Route: 048
     Dates: start: 20030301
  2. INSULIN [Concomitant]
     Route: 065
  3. ETANERCEPT [Concomitant]
     Route: 058
  4. PREDNISOLONE [Concomitant]
     Route: 065
  5. CHOLECALCIFEROL AND CALCIUM CARBONATE [Concomitant]
     Route: 065
  6. ESOMEPRAZOLE MAGNESIUM [Concomitant]
     Route: 065

REACTIONS (2)
  - CARDIAC ARREST [None]
  - SUDDEN CARDIAC DEATH [None]
